FAERS Safety Report 20706379 (Version 1)
Quarter: 2022Q2

REPORT INFORMATION
  Report Type: Spontaneous
  Country: US (occurrence: US)
  Receive Date: 20220413
  Receipt Date: 20220413
  Transmission Date: 20220721
  Serious: No
  Sender: FDA-Public Use
  Company Number: US-MYLANLABS-2022M1025205

PATIENT
  Age: 65 Year
  Sex: Male
  Weight: 106.59 kg

DRUGS (1)
  1. LIDOCAINE PATCH [Suspect]
     Active Substance: LIDOCAINE
     Indication: Neuralgia
     Dosage: 5 PERCENT, QD (ONCE DAILY)
     Route: 003
     Dates: start: 20220307

REACTIONS (3)
  - Product adhesion issue [Unknown]
  - Product quality issue [Unknown]
  - Off label use [Unknown]

NARRATIVE: CASE EVENT DATE: 20220307
